FAERS Safety Report 16425973 (Version 3)
Quarter: 2019Q3

REPORT INFORMATION
  Report Type: Spontaneous
  Country: US (occurrence: US)
  Receive Date: 20190613
  Receipt Date: 20190731
  Transmission Date: 20191004
  Serious: Yes (Hospitalization, Other)
  Sender: FDA-Public Use
  Company Number: US-PFIZER INC-2016064358

PATIENT
  Age: 33 Year
  Sex: Male

DRUGS (2)
  1. VIAGRA [Suspect]
     Active Substance: SILDENAFIL CITRATE
     Indication: ORGANIC ERECTILE DYSFUNCTION
     Dosage: 100 MG, 1/2 TO 4 HOURS PRIOR TO INTERCOURSE
     Route: 048
  2. VIAGRA [Suspect]
     Active Substance: SILDENAFIL CITRATE
     Indication: ERECTILE DYSFUNCTION
     Dosage: UNK UNK, AS NEEDED (WHEN IN NEED ONCE, MAY BE TWICE A WEEK)
     Dates: start: 2008

REACTIONS (2)
  - Therapeutic product effect incomplete [Unknown]
  - Multiple sclerosis [Not Recovered/Not Resolved]

NARRATIVE: CASE EVENT DATE: 2003
